FAERS Safety Report 5257640-X (Version None)
Quarter: 2007Q1

REPORT INFORMATION
  Report Type: 
  Country: None (occurrence: None)
  Receive Date: 20070307
  Receipt Date: 20070223
  Transmission Date: 20070707
  Serious: Yes (Hospitalization)
  Sender: FDA-Public Use
  Company Number: PHHO2007ES03707

PATIENT
  Age: 74 Year
  Sex: Male

DRUGS (10)
  1. GLEEVEC [Suspect]
     Indication: CHRONIC MYELOID LEUKAEMIA
     Dosage: 400 MG, QD
     Route: 048
     Dates: start: 20050624
  2. FUROSEMIDE [Concomitant]
  3. CAPTOPRIL [Concomitant]
  4. OMEPRAZOLE [Concomitant]
  5. ALOPURINOL [Concomitant]
  6. METAMIZOLE [Concomitant]
  7. ALPRAZOLAM [Concomitant]
     Indication: ANXIETY
  8. PIRACETAM [Concomitant]
  9. RAMIPRIL [Concomitant]
  10. DIAZEPAM [Concomitant]
     Indication: ANXIETY

REACTIONS (4)
  - CARDIAC FAILURE [None]
  - ESCHERICHIA URINARY TRACT INFECTION [None]
  - HYPERTENSIVE CARDIOMYOPATHY [None]
  - RESPIRATORY TRACT INFECTION [None]
